FAERS Safety Report 6018507-2 (Version None)
Quarter: 2008Q4

REPORT INFORMATION
  Report Type: 
  Country: None (occurrence: None)
  Receive Date: 20081223
  Receipt Date: 20081218
  Transmission Date: 20090506
  Serious: Yes (Other)
  Sender: FDA-Public Use
  Company Number: US-JNJCH-2008057847

PATIENT
  Age: 46 Year
  Sex: Female

DRUGS (1)
  1. LISTERINE WHITENING QUICK DISSOLVING STRIPS [Suspect]
     Indication: DENTAL CARE
     Dosage: TEXT:AS DIRECTED ONCE A DAY
     Route: 048
     Dates: start: 20081215, end: 20081216

REACTIONS (3)
  - CHEILITIS [None]
  - HYPERSENSITIVITY [None]
  - STOMATITIS [None]
